FAERS Safety Report 13115155 (Version 1)
Quarter: 2017Q1

REPORT INFORMATION
  Report Type: Spontaneous
  Country: US (occurrence: US)
  Receive Date: 20170113
  Receipt Date: 20170113
  Transmission Date: 20170428
  Serious: Yes (Hospitalization, Other)
  Sender: FDA-Public Use
  Company Number: US-BEH-2017076928

PATIENT
  Age: 59 Year
  Sex: Female
  Weight: 45.35 kg

DRUGS (14)
  1. METHOTREXATE. [Concomitant]
     Active Substance: METHOTREXATE
  2. MAGNESIUM [Concomitant]
     Active Substance: MAGNESIUM
  3. HIZENTRA [Suspect]
     Active Substance: HUMAN IMMUNOGLOBULIN G
     Dosage: UNK
     Route: 058
  4. HIZENTRA [Suspect]
     Active Substance: HUMAN IMMUNOGLOBULIN G
     Indication: IMMUNODEFICIENCY COMMON VARIABLE
     Dosage: 10 G, QW
     Route: 058
     Dates: start: 20150731
  5. HIZENTRA [Suspect]
     Active Substance: HUMAN IMMUNOGLOBULIN G
     Dosage: UNK
     Route: 058
  6. LEVALBUTEROL. [Concomitant]
     Active Substance: LEVALBUTEROL
  7. CREON [Concomitant]
     Active Substance: PANCRELIPASE AMYLASE\PANCRELIPASE LIPASE\PANCRELIPASE PROTEASE
  8. ACETAMINOPHEN. [Concomitant]
     Active Substance: ACETAMINOPHEN
  9. DIPHENHYDRAMINE. [Concomitant]
     Active Substance: DIPHENHYDRAMINE
  10. CEFTRIAXONE. [Concomitant]
     Active Substance: CEFTRIAXONE
  11. ACEBUTOLOL [Concomitant]
     Active Substance: ACEBUTOLOL
  12. EPIPEN [Concomitant]
     Active Substance: EPINEPHRINE
  13. XANAX [Concomitant]
     Active Substance: ALPRAZOLAM
  14. KEPPRA [Concomitant]
     Active Substance: LEVETIRACETAM

REACTIONS (9)
  - Staphylococcal bacteraemia [Unknown]
  - Fatigue [Unknown]
  - Blood sodium decreased [Unknown]
  - Blood sodium decreased [Unknown]
  - Lower respiratory tract congestion [Unknown]
  - Blood sodium decreased [Unknown]
  - Pneumonia [Unknown]
  - Rash [Unknown]
  - Urinary tract infection [Unknown]

NARRATIVE: CASE EVENT DATE: 201610
